FAERS Safety Report 9435739 (Version 1)
Quarter: 2013Q3

REPORT INFORMATION
  Report Type: Spontaneous
  Country: JP (occurrence: JP)
  Receive Date: 20130801
  Receipt Date: 20130801
  Transmission Date: 20140515
  Serious: Yes (Hospitalization)
  Sender: FDA-Public Use
  Company Number: JP-ABBOTT-13P-087-1106678-00

PATIENT
  Age: 75 Year
  Sex: Male

DRUGS (7)
  1. LEUPLIN FOR INJECTION KIT 3.75 [Suspect]
     Indication: PROSTATE CANCER
     Route: 058
     Dates: start: 20110428, end: 20110913
  2. LEUPLIN SR FOR INJECTION KIT 11.25 [Suspect]
     Indication: PROSTATE CANCER
     Route: 058
     Dates: start: 20111011, end: 20130220
  3. CASODEX [Suspect]
     Indication: PROSTATE CANCER
     Route: 048
     Dates: start: 20110421, end: 20130425
  4. HARNAL D [Concomitant]
     Indication: BENIGN PROSTATIC HYPERPLASIA
     Route: 048
     Dates: start: 20110913
  5. AMLODIPINE BESILATE [Concomitant]
     Indication: HYPERTENSION
     Route: 048
  6. ZYLORIC [Concomitant]
     Indication: HYPERURICAEMIA
     Route: 048
  7. SEPAZON [Concomitant]
     Indication: INSOMNIA
     Route: 048

REACTIONS (1)
  - Interstitial lung disease [Recovering/Resolving]
